FAERS Safety Report 7916703-8 (Version None)
Quarter: 2011Q4

REPORT INFORMATION
  Report Type: 
  Country: None (occurrence: None)
  Receive Date: 20111101
  Receipt Date: 20111019
  Transmission Date: 20120403
  Serious: Yes (Hospitalization)
  Sender: FDA-Public Use
  Company Number: 2011030073

PATIENT
  Sex: Female
  Weight: 63.5036 kg

DRUGS (2)
  1. VIVAGLOBIN [Suspect]
     Indication: IMMUNODEFICIENCY COMMON VARIABLE
     Dosage: 7.36 G 1X/WEEK SUBCUTANEOUS, (5.76 G 2X/WEEK SUBCUTANEOUS)
     Route: 058
     Dates: start: 20081101, end: 20090301
  2. VIVAGLOBIN [Suspect]
     Indication: IMMUNODEFICIENCY COMMON VARIABLE
     Dosage: 7.36 G 1X/WEEK SUBCUTANEOUS, (5.76 G 2X/WEEK SUBCUTANEOUS)
     Route: 058
     Dates: start: 20090301, end: 20101123

REACTIONS (6)
  - CANDIDA TEST POSITIVE [None]
  - POST PROCEDURAL COMPLICATION [None]
  - STAPHYLOCOCCUS TEST POSITIVE [None]
  - PELVIC ABSCESS [None]
  - STREPTOCOCCUS TEST POSITIVE [None]
  - ANASTOMOTIC LEAK [None]
